FAERS Safety Report 12736324 (Version 1)
Quarter: 2016Q3

REPORT INFORMATION
  Report Type: Report from Study
  Country: US (occurrence: US)
  Receive Date: 20160913
  Receipt Date: 20160913
  Transmission Date: 20161109
  Serious: Yes (Death, Other)
  Sender: FDA-Public Use
  Company Number: US-ROCHE-1823861

PATIENT

DRUGS (4)
  1. RIBAVIRIN. [Suspect]
     Active Substance: RIBAVIRIN
     Indication: HEPATITIS C
     Dosage: WEIGHT BASED RIBAVIRIN THERAPY (1000 MG DAILY FOR PATIENTS { 75 KG AND 1200 MG DAILY FOR PATIENTS }/
     Route: 048
  2. SIMEPREVIR [Suspect]
     Active Substance: SIMEPREVIR
     Indication: HEPATITIS C
     Route: 048
  3. PEG-INTERFERON ALFA 2A [Suspect]
     Active Substance: PEGINTERFERON ALFA-2A
     Indication: HEPATITIS C
     Route: 065
  4. SOFOSBUVIR [Suspect]
     Active Substance: SOFOSBUVIR
     Indication: HEPATITIS C
     Route: 048

REACTIONS (10)
  - Fatigue [Unknown]
  - Gastrointestinal haemorrhage [Fatal]
  - Hepatic failure [Unknown]
  - Rash [Unknown]
  - Headache [Unknown]
  - Pruritus [Unknown]
  - Treatment failure [Unknown]
  - Sepsis [Fatal]
  - Anaemia [Unknown]
  - Nausea [Unknown]
